FAERS Safety Report 5859033-0 (Version None)
Quarter: 2008Q3

REPORT INFORMATION
  Report Type: 
  Country: None (occurrence: None)
  Receive Date: 20080825
  Receipt Date: 20080813
  Transmission Date: 20090109
  Serious: Yes (Hospitalization)
  Sender: FDA-Public Use
  Company Number: 2008US002140

PATIENT
  Age: 10 Year
  Sex: Female

DRUGS (1)
  1. AMBISOME [Suspect]
     Indication: ASPERGILLOSIS
     Dosage: 50 MG, UID/QD, IV NOS
     Route: 042
     Dates: start: 20080714

REACTIONS (7)
  - AMMONIA INCREASED [None]
  - BLOOD POTASSIUM DECREASED [None]
  - DEPRESSED LEVEL OF CONSCIOUSNESS [None]
  - GASTROINTESTINAL DISORDER [None]
  - GRAFT VERSUS HOST DISEASE [None]
  - MYDRIASIS [None]
  - VIRAL INFECTION [None]
